FAERS Safety Report 11284365 (Version 1)
Quarter: 2015Q3

REPORT INFORMATION
  Report Type: Report from Study
  Country: DE (occurrence: DE)
  Receive Date: 20150720
  Receipt Date: 20150720
  Transmission Date: 20151125
  Serious: Yes (Hospitalization, Other)
  Sender: FDA-Public Use
  Company Number: US-ASTRAZENECA-2015SE65144

PATIENT
  Age: 71 Day
  Sex: Male
  Weight: 3.8 kg

DRUGS (5)
  1. ACETYLSALICYLIC ACID [Concomitant]
     Active Substance: ASPIRIN
     Indication: PRODUCT USED FOR UNKNOWN INDICATION
     Dates: start: 20141002
  2. SYNAGIS [Suspect]
     Active Substance: PALIVIZUMAB
     Indication: PRODUCT USED FOR UNKNOWN INDICATION
     Dosage: 57.7 MG
     Route: 030
     Dates: start: 20141107, end: 20141107
  3. SYNAGIS [Suspect]
     Active Substance: PALIVIZUMAB
     Indication: PRODUCT USED FOR UNKNOWN INDICATION
     Dosage: 84 MG
     Route: 030
     Dates: start: 20150303, end: 20150303
  4. SYNAGIS [Suspect]
     Active Substance: PALIVIZUMAB
     Indication: PRODUCT USED FOR UNKNOWN INDICATION
     Dosage: 87 MG
     Route: 030
     Dates: start: 20150331, end: 20150331
  5. SYNAGIS [Suspect]
     Active Substance: PALIVIZUMAB
     Indication: PRODUCT USED FOR UNKNOWN INDICATION
     Dosage: 77 MG
     Route: 030
     Dates: start: 20150203, end: 20150203

REACTIONS (2)
  - Aortic stenosis [Recovered/Resolved]
  - Cardiopulmonary failure [Recovering/Resolving]

NARRATIVE: CASE EVENT DATE: 20141204
